FAERS Safety Report 6107381-1 (Version None)
Quarter: 2009Q1

REPORT INFORMATION
  Report Type: 
  Country: None (occurrence: None)
  Receive Date: 20090309
  Receipt Date: 20090226
  Transmission Date: 20090719
  Serious: Yes (Disabling)
  Sender: FDA-Public Use
  Company Number: AR-NOVOPROD-282848

PATIENT
  Sex: Female
  Weight: 71.3 kg

DRUGS (5)
  1. INSULIN DETEMIR PENFILL [Suspect]
     Indication: TYPE 1 DIABETES MELLITUS
     Dosage: 65 U, QD
     Route: 058
     Dates: start: 20080807
  2. INSULIN DETEMIR PENFILL [Suspect]
     Dosage: 73 IU, QD
     Route: 058
     Dates: end: 20081230
  3. NOVORAPID PENFILL 3.0 ML [Suspect]
     Indication: TYPE 1 DIABETES MELLITUS
     Dosage: 8 U, QD
     Route: 058
     Dates: start: 20080807
  4. NOVORAPID PENFILL 3.0 ML [Suspect]
     Dosage: 7 IU, QD
     Route: 058
     Dates: end: 20081230
  5. FOLIC ACID [Concomitant]
     Dosage: 5 MG, QD
     Route: 048
     Dates: start: 20080620

REACTIONS (2)
  - MACULOPATHY [None]
  - VITREOUS HAEMORRHAGE [None]
